FAERS Safety Report 8834109 (Version 1)
Quarter: 2012Q4

REPORT INFORMATION
  Report Type: 
  Country: GB (occurrence: GB)
  Receive Date: 20121010
  Receipt Date: 20121010
  Transmission Date: 20130627
  Serious: Yes (Hospitalization)
  Sender: FDA-Public Use
  Company Number: GB-WATSON-2012-17479

PATIENT
  Age: 26 Year
  Sex: Male

DRUGS (2)
  1. PREDNISOLONE (UNKNOWN) [Suspect]
     Indication: HELICOBACTER INFECTION
     Dosage: 30 mg, unknown
     Route: 065
  2. DERMOVATE [Suspect]
     Indication: HELICOBACTER INFECTION
     Route: 061

REACTIONS (5)
  - Disease progression [Recovered/Resolved]
  - Condition aggravated [Recovered/Resolved]
  - Helicobacter infection [Recovered/Resolved]
  - Skin ulcer [None]
  - Arthralgia [Recovered/Resolved]
